FAERS Safety Report 6349610-5 (Version None)
Quarter: 2009Q3

REPORT INFORMATION
  Report Type: 
  Country: None (occurrence: None)
  Receive Date: 20090911
  Receipt Date: 20090903
  Transmission Date: 20100115
  Serious: Yes (Other)
  Sender: FDA-Public Use
  Company Number: US-ABBOTT-09P-163-0591495-00

PATIENT
  Sex: Female
  Weight: 63.56 kg

DRUGS (2)
  1. HUMIRA [Suspect]
     Indication: CROHN'S DISEASE
     Dates: start: 20081001
  2. PROVIGIL [Concomitant]
     Indication: NARCOLEPSY

REACTIONS (6)
  - COLD SWEAT [None]
  - DIZZINESS [None]
  - HOT FLUSH [None]
  - JOINT INJURY [None]
  - LOSS OF CONSCIOUSNESS [None]
  - MIGRAINE [None]
